FAERS Safety Report 14566461 (Version 1)
Quarter: 2018Q1

REPORT INFORMATION
  Report Type: Spontaneous
  Country: IT (occurrence: IT)
  Receive Date: 20180223
  Receipt Date: 20180223
  Transmission Date: 20180509
  Serious: Yes (Hospitalization)
  Sender: FDA-Public Use
  Company Number: IT-AUROBINDO-AUR-APL-2018-009371

PATIENT
  Age: 49 Year
  Sex: Male

DRUGS (2)
  1. LORAZEPAM. [Suspect]
     Active Substance: LORAZEPAM
     Indication: PRODUCT USED FOR UNKNOWN INDICATION
     Dosage: 10 ML, TOTAL ; IN TOTAL
     Route: 048
     Dates: start: 20180103, end: 20180103
  2. ENTUMIN [Suspect]
     Active Substance: CLOTHIAPINE
     Indication: PRODUCT USED FOR UNKNOWN INDICATION
     Dosage: 10 ML, TOTAL ; IN TOTAL
     Route: 048
     Dates: start: 20180103, end: 20180103

REACTIONS (2)
  - Suicide attempt [Recovered/Resolved]
  - Sopor [Recovered/Resolved]

NARRATIVE: CASE EVENT DATE: 20180103
